FAERS Safety Report 6300998-0 (Version None)
Quarter: 2009Q3

REPORT INFORMATION
  Report Type: 
  Country: None (occurrence: None)
  Receive Date: 20090807
  Receipt Date: 20090729
  Transmission Date: 20100115
  Serious: Yes (Death)
  Sender: FDA-Public Use
  Company Number: IN-WYE-H09923409

PATIENT
  Sex: Male
  Weight: 43 kg

DRUGS (6)
  1. TEMSIROLIMUS [Suspect]
     Indication: RENAL CELL CARCINOMA
     Route: 042
     Dates: start: 20090610, end: 20090617
  2. HEPARIN [Concomitant]
     Indication: DEEP VEIN THROMBOSIS
     Dosage: NOT PROVIDED
     Dates: start: 20090603
  3. LACTULOSE [Concomitant]
     Indication: PROPHYLAXIS
     Route: 048
     Dates: start: 20090610
  4. BEVACIZUMAB [Suspect]
     Indication: RENAL CELL CARCINOMA
     Route: 042
     Dates: start: 20090610
  5. MORPHINE [Concomitant]
     Indication: BACK PAIN
     Route: 048
     Dates: start: 20090610
  6. MORPHINE [Concomitant]
     Route: 048
     Dates: start: 20090610

REACTIONS (1)
  - SUDDEN DEATH [None]
